FAERS Safety Report 25200943 (Version 1)
Quarter: 2025Q2

REPORT INFORMATION
  Report Type: Spontaneous
  Country: FR (occurrence: FR)
  Receive Date: 20250415
  Receipt Date: 20250415
  Transmission Date: 20250716
  Serious: Yes (Hospitalization, Other)
  Sender: SANOFI AVENTIS
  Company Number: None

PATIENT
  Age: 84 Year
  Sex: Female
  Weight: 68 kg

DRUGS (5)
  1. LOVENOX [Suspect]
     Active Substance: ENOXAPARIN SODIUM
     Indication: Product used for unknown indication
     Dosage: 4000 IU, QD
     Route: 058
     Dates: start: 20250217, end: 20250217
  2. LOVENOX [Suspect]
     Active Substance: ENOXAPARIN SODIUM
     Dosage: 7000 IU, QD
     Route: 058
     Dates: start: 20250218, end: 20250219
  3. WARFARIN SODIUM [Concomitant]
     Active Substance: WARFARIN SODIUM
     Indication: Atrial fibrillation
     Dosage: 2 DF, QD
     Route: 048
     Dates: end: 20250212
  4. WARFARIN SODIUM [Concomitant]
     Active Substance: WARFARIN SODIUM
     Dosage: 2 DF, QD
     Route: 048
     Dates: start: 20250214, end: 20250215
  5. WARFARIN SODIUM [Concomitant]
     Active Substance: WARFARIN SODIUM
     Dosage: 2 DF, QD
     Route: 048
     Dates: start: 20250220, end: 20250221

REACTIONS (2)
  - Embolic cerebral infarction [Recovered/Resolved with Sequelae]
  - Incorrect dose administered [Unknown]

NARRATIVE: CASE EVENT DATE: 20250218
